FAERS Safety Report 20860559 (Version 1)
Quarter: 2022Q2

REPORT INFORMATION
  Report Type: Spontaneous
  Country: US (occurrence: US)
  Receive Date: 20220523
  Receipt Date: 20220523
  Transmission Date: 20220721
  Serious: No
  Sender: FDA-Public Use
  Company Number: US-CADILA HEALTHCARE LIMITED-US-ZYDUS-076735

PATIENT

DRUGS (1)
  1. BOSENTAN [Suspect]
     Active Substance: BOSENTAN
     Indication: Pulmonary arterial hypertension
     Dosage: BID
     Route: 048
     Dates: start: 20190628

REACTIONS (5)
  - Fatigue [Unknown]
  - Chest pain [Unknown]
  - Bronchitis [Recovering/Resolving]
  - Sinusitis [Recovering/Resolving]
  - Dyspnoea exertional [Unknown]
